FAERS Safety Report 4638964-3 (Version None)
Quarter: 2005Q2

REPORT INFORMATION
  Report Type: 
  Country: None (occurrence: None)
  Receive Date: 20050419
  Receipt Date: 20050414
  Transmission Date: 20051028
  Serious: Yes (Other)
  Sender: FDA-Public Use
  Company Number: NG-GLAXOSMITHKLINE-B0378290A

PATIENT
  Age: 20 Year
  Sex: Female
  Weight: 49 kg

DRUGS (5)
  1. AUGMENTIN '125' [Suspect]
     Indication: TYPHOID FEVER
     Dosage: 625MG TWICE PER DAY
     Route: 048
     Dates: start: 20050305, end: 20050305
  2. DEXTROMETHORPHAN (BENYLIN) [Concomitant]
     Indication: COUGH
     Dosage: 10ML THREE TIMES PER DAY
     Route: 048
     Dates: start: 20050305, end: 20050305
  3. IRON + FOLIC ACID [Concomitant]
     Indication: DRUG USE FOR UNKNOWN INDICATION
     Dosage: 1CAP TWICE PER DAY
     Route: 048
  4. VITAMIN B COMPLEX CAP [Concomitant]
     Indication: DRUG USE FOR UNKNOWN INDICATION
     Route: 048
     Dates: start: 20050305, end: 20050305
  5. ACETAMINOPHEN [Concomitant]
     Indication: DRUG USE FOR UNKNOWN INDICATION
     Dosage: 2TAB THREE TIMES PER DAY

REACTIONS (6)
  - DRY MOUTH [None]
  - HALLUCINATION [None]
  - INCOHERENT [None]
  - RESTLESSNESS [None]
  - SENSATION OF HEAVINESS [None]
  - SENSORY DISTURBANCE [None]
